FAERS Safety Report 7425260-4 (Version None)
Quarter: 2011Q2

REPORT INFORMATION
  Report Type: 
  Country: None (occurrence: None)
  Receive Date: 20110420
  Receipt Date: 20101021
  Transmission Date: 20111010
  Serious: Yes (Hospitalization, Other)
  Sender: FDA-Public Use
  Company Number: US-BAYER-201019413NA

PATIENT
  Sex: Female
  Weight: 79 kg

DRUGS (3)
  1. IBUPROFEN [Concomitant]
  2. YAZ [Suspect]
     Indication: ACNE
     Dosage: UNK UNK, QD
     Route: 048
     Dates: start: 20070101, end: 20081025
  3. YAZ [Suspect]
     Indication: CONTRACEPTION

REACTIONS (6)
  - ABDOMINAL PAIN [None]
  - NAUSEA [None]
  - VOMITING [None]
  - BACK PAIN [None]
  - CHOLECYSTITIS [None]
  - GALLBLADDER INJURY [None]
